FAERS Safety Report 9438001 (Version 1)
Quarter: 2013Q3

REPORT INFORMATION
  Report Type: Spontaneous
  Country: US (occurrence: US)
  Receive Date: 20130802
  Receipt Date: 20130802
  Transmission Date: 20140515
  Serious: No
  Sender: FDA-Public Use
  Company Number: US-BRISTOL-MYERS SQUIBB COMPANY-16696007

PATIENT
  Age: 45 Year
  Sex: Male
  Weight: 131.06 kg

DRUGS (1)
  1. COUMADIN [Suspect]
     Indication: THROMBOSIS
     Dosage: 1DF = 5MG OR 10MG?AT NIGHT, STARTED BEFORE:6MONTHS
     Route: 048

REACTIONS (5)
  - Haemoptysis [Unknown]
  - Overdose [Unknown]
  - Blood urine present [Unknown]
  - Back pain [Unknown]
  - Local swelling [Unknown]
